FAERS Safety Report 12428705 (Version 1)
Quarter: 2016Q2

REPORT INFORMATION
  Report Type: Spontaneous
  Country: US (occurrence: None)
  Receive Date: 20160601
  Receipt Date: 20160601
  Transmission Date: 20160815
  Serious: No
  Sender: FDA-Public Use
  Company Number: None

PATIENT
  Age: 39 Year
  Sex: Female

DRUGS (1)
  1. SULFACETAMIDE OPHTH SOLN, 10% [Suspect]
     Active Substance: SULFACETAMIDE
     Route: 047

REACTIONS (2)
  - Tongue ulceration [None]
  - Neck pain [None]

NARRATIVE: CASE EVENT DATE: 20160528
